FAERS Safety Report 7503222 (Version 4)
Quarter: 2025Q4

REPORT INFORMATION
  Report Type: Spontaneous
  Country: EU (occurrence: EU)
  Receive Date: 20100727
  Receipt Date: 20251024
  Transmission Date: 20260117
  Serious: Yes (Life-Threatening, Hospitalization, Other)
  Sender: MYLAN
  Company Number: EU-ASTRAZENECA-2010SE31911

PATIENT
  Age: 75 Year
  Sex: Male

DRUGS (5)
  1. METOPROLOL [Interacting]
     Active Substance: METOPROLOL
     Indication: Cardiac failure
     Dosage: 100 MILLIGRAM, QD, DAILY DOSE: 100 (E2B UNIT: 003)
  2. RAMIPRIL [Interacting]
     Active Substance: RAMIPRIL
     Indication: Cardiac failure
     Dosage: 10 MILLIGRAM, QD, DAILY DOSE: 10 (E2B UNIT: 003)
  3. SPIRONOLACTONE [Interacting]
     Active Substance: SPIRONOLACTONE
     Indication: Cardiac failure
     Dosage: 25 MILLIGRAM, QD, DAILY DOSE: 25 (E2B UNIT: 003)
  4. BUMETANIDE [Interacting]
     Active Substance: BUMETANIDE
     Indication: Cardiac failure
     Dosage: 1.5 MILLIGRAM, QD
  5. DIGITOXIN [Concomitant]
     Active Substance: DIGITOXIN
     Indication: Cardiac failure
     Dosage: 50 MICROGRAM, QD

REACTIONS (11)
  - Renal failure [Recovered/Resolved]
  - Metabolic acidosis [Recovered/Resolved]
  - Oliguria [Recovered/Resolved]
  - Drug interaction [Unknown]
  - Hyperkalaemia [Recovered/Resolved]
  - Depressed level of consciousness [Recovered/Resolved]
  - Cardiogenic shock [Recovered/Resolved]
  - Hypotension [Recovered/Resolved]
  - Confusional state [Recovered/Resolved]
  - Peripheral coldness [Recovered/Resolved]
  - Bradycardia [Recovered/Resolved]
